FAERS Safety Report 15436541 (Version 1)
Quarter: 2018Q4

REPORT INFORMATION
  Report Type: Spontaneous
  Country: DK (occurrence: DK)
  Receive Date: 20180927
  Receipt Date: 20180927
  Transmission Date: 20190204
  Serious: Yes (Other)
  Sender: FDA-Public Use
  Company Number: DK-PFIZER INC-2018385359

PATIENT
  Age: 47 Year
  Sex: Female

DRUGS (11)
  1. TRUXAL [CHLORPROTHIXENE HYDROCHLORIDE] [Suspect]
     Active Substance: CHLORPROTHIXENE
     Dosage: DOSE: 50-150 MG X 3. MANY BREAKS. PERMANENT MEDICATION 12AUG2013-27AUG2013. OTHERWISE IF NEEDED
     Dates: start: 20100415, end: 20150902
  2. IMOCLONE [Suspect]
     Active Substance: ZOPICLONE
     Indication: INSOMNIA
     Dosage: 3.75 MG, 1X/DAY
     Route: 048
     Dates: start: 20160329, end: 20170222
  3. LITAREX [LITHIUM CITRATE] [Suspect]
     Active Substance: LITHIUM CITRATE
     Indication: DEPRESSION
     Dosage: 3 DF, UNK, STRENGTH: 6 MMOL LI+.
     Route: 048
     Dates: start: 2013
  4. SEROQUEL [Suspect]
     Active Substance: QUETIAPINE FUMARATE
     Dosage: DOSE: VARIABLE
     Route: 048
     Dates: start: 20160215, end: 20170321
  5. RISPERDAL [Suspect]
     Active Substance: RISPERIDONE
     Indication: BIPOLAR DISORDER
     Dosage: DOSE: 2-4 MG.
     Route: 048
     Dates: start: 20130107, end: 20130403
  6. SEROQUEL [Suspect]
     Active Substance: QUETIAPINE FUMARATE
     Indication: DEPRESSION
     Dosage: DOSE: VARIABLE
     Route: 048
     Dates: start: 20110224, end: 20140611
  7. OXAPAX [Suspect]
     Active Substance: OXAZEPAM
     Dosage: DOSE: VARIABLE
     Route: 048
     Dates: start: 20170819, end: 20170905
  8. LYRICA [Suspect]
     Active Substance: PREGABALIN
     Indication: ANXIETY
     Dosage: 75 MG, 1X/DAY
     Route: 048
     Dates: start: 20160609, end: 20161117
  9. OXAPAX [Suspect]
     Active Substance: OXAZEPAM
     Indication: ANXIETY
     Dosage: DOSE: VARIABLE
     Route: 048
     Dates: start: 20160331, end: 20170106
  10. ABILIFY [Suspect]
     Active Substance: ARIPIPRAZOLE
     Dosage: 10 MG, 1X/DAY
     Route: 048
     Dates: start: 20170718, end: 20170727
  11. ABILIFY [Suspect]
     Active Substance: ARIPIPRAZOLE
     Indication: BIPOLAR DISORDER
     Dosage: 15 MG, 1X/DAY
     Route: 048
     Dates: start: 20150902, end: 20151126

REACTIONS (7)
  - Dental caries [Not Recovered/Not Resolved]
  - Tooth injury [Not Recovered/Not Resolved]
  - Tooth infection [Unknown]
  - Oral pain [Not Recovered/Not Resolved]
  - Gingivitis [Not Recovered/Not Resolved]
  - Tooth abscess [Unknown]
  - Hypoaesthesia [Not Recovered/Not Resolved]

NARRATIVE: CASE EVENT DATE: 2013
